FAERS Safety Report 6860642-0 (Version None)
Quarter: 2010Q3

REPORT INFORMATION
  Report Type: 
  Country: None (occurrence: None)
  Receive Date: 20100716
  Receipt Date: 20100621
  Transmission Date: 20110219
  Serious: Yes (Hospitalization)
  Sender: FDA-Public Use
  Company Number: AE100715DR1

PATIENT
  Age: 27 Year
  Sex: Male

DRUGS (2)
  1. CHENODIOL [Suspect]
     Indication: XANTHOMATOSIS
     Dosage: 250MG PO. TID
     Route: 048
     Dates: start: 20090901
  2. CHENODIOL [Suspect]
     Indication: XANTHOMATOSIS
     Dosage: 250 MG PO TID

REACTIONS (3)
  - BILE DUCT OBSTRUCTION [None]
  - PANCREATITIS ACUTE [None]
  - PSEUDOCYST [None]
